FAERS Safety Report 23228589 (Version 2)
Quarter: 2023Q4

REPORT INFORMATION
  Report Type: Spontaneous
  Country: US (occurrence: US)
  Receive Date: 20231125
  Receipt Date: 20231226
  Transmission Date: 20240110
  Serious: No
  Sender: FDA-Public Use
  Company Number: US-BAYER-2023A157011

PATIENT
  Age: 11 Year
  Sex: Male

DRUGS (1)
  1. KOVALTRY [Suspect]
     Active Substance: ANTIHEMOPHILIC FACTOR, HUMAN RECOMBINANT
     Dosage: INFUSE 2000 3 X WEEKLY AND AS NEEDED

REACTIONS (1)
  - Epistaxis [None]

NARRATIVE: CASE EVENT DATE: 20231031
